FAERS Safety Report 21012474 (Version 15)
Quarter: 2023Q2

REPORT INFORMATION
  Report Type: Report from Study
  Country: US (occurrence: US)
  Receive Date: 20220627
  Receipt Date: 20230417
  Transmission Date: 20230721
  Serious: Yes (Hospitalization)
  Sender: FDA-Public Use
  Company Number: US-002147023-NVSC2022US145869

PATIENT
  Sex: Male
  Weight: 86.621 kg

DRUGS (6)
  1. TREPROSTINIL [Suspect]
     Active Substance: TREPROSTINIL
     Indication: Pulmonary arterial hypertension
     Dosage: 7 NG/KG/MIN, CONT
     Route: 058
     Dates: start: 20220615
  2. TREPROSTINIL [Suspect]
     Active Substance: TREPROSTINIL
     Dosage: 7 NG/KG/MIN, CONT
     Route: 058
  3. TREPROSTINIL [Suspect]
     Active Substance: TREPROSTINIL
     Dosage: 12 NG/KG/MIN, CONT
     Route: 058
  4. TREPROSTINIL [Suspect]
     Active Substance: TREPROSTINIL
     Dosage: 10 NG/KG/ MIN, CONT
     Route: 058
  5. TREPROSTINIL [Suspect]
     Active Substance: TREPROSTINIL
     Dosage: 13 NG/KG/MIN, CONT
     Route: 058
  6. TREPROSTINIL [Suspect]
     Active Substance: TREPROSTINIL
     Dosage: 16 NG/KG/MIN, CONT
     Route: 058

REACTIONS (26)
  - COVID-19 [Unknown]
  - Dyspnoea [Unknown]
  - Feeling abnormal [Unknown]
  - Limb discomfort [Unknown]
  - Dermatitis contact [Unknown]
  - Productive cough [Unknown]
  - Groin pain [Recovered/Resolved]
  - Weight increased [Unknown]
  - Urticaria [Unknown]
  - Back pain [Unknown]
  - Pain [Unknown]
  - Nausea [Unknown]
  - Arthralgia [Unknown]
  - Myalgia [Unknown]
  - Hypotension [Unknown]
  - Pain in extremity [Unknown]
  - Dyspnoea exertional [Unknown]
  - Diarrhoea [Unknown]
  - Pruritus [Unknown]
  - Injection site erythema [Unknown]
  - Injection site pain [Unknown]
  - Injection site reaction [Unknown]
  - Injection site haemorrhage [Unknown]
  - Injection site pustule [Unknown]
  - Injection site mass [Unknown]
  - Injection site warmth [Unknown]
